FAERS Safety Report 15868638 (Version 1)
Quarter: 2019Q1

REPORT INFORMATION
  Report Type: Spontaneous
  Country: US (occurrence: US)
  Receive Date: 20190125
  Receipt Date: 20190125
  Transmission Date: 20190417
  Serious: Yes (Other)
  Sender: FDA-Public Use
  Company Number: US-MALLINCKRODT-T201901098

PATIENT
  Sex: Female
  Weight: 63 kg

DRUGS (3)
  1. H.P. ACTHAR [Suspect]
     Active Substance: CORTICOTROPIN
     Indication: RHEUMATOID ARTHRITIS
     Dosage: 80 UNITS/1ML, TWO TIMES WEEK, AS DIRECTED
     Route: 058
     Dates: start: 201708
  2. H.P. ACTHAR [Suspect]
     Active Substance: CORTICOTROPIN
     Indication: ENDOCRINE DISORDER
  3. H.P. ACTHAR [Suspect]
     Active Substance: CORTICOTROPIN
     Indication: SARCOIDOSIS

REACTIONS (4)
  - Influenza [Unknown]
  - Pulmonary congestion [Unknown]
  - Asthenia [Unknown]
  - Dizziness [Unknown]
